FAERS Safety Report 7064968-X (Version None)
Quarter: 2010Q4

REPORT INFORMATION
  Report Type: 
  Country: None (occurrence: None)
  Receive Date: 20101022
  Receipt Date: 20101022
  Transmission Date: 20110411
  Serious: Yes (Hospitalization)
  Sender: FDA-Public Use
  Company Number: None

PATIENT
  Age: 24 Year
  Sex: Male

DRUGS (1)
  1. IFOSFAMIDE [Suspect]
     Indication: TESTIS CANCER
     Dosage: 1.2GM/M2/DAY DAILY FOR 3 DAYS IV DRIP
     Route: 041
     Dates: start: 20091223, end: 20091225

REACTIONS (2)
  - ANXIETY [None]
  - CONFUSIONAL STATE [None]
